FAERS Safety Report 10043595 (Version 1)
Quarter: 2014Q1

REPORT INFORMATION
  Report Type: Spontaneous
  Country: BR (occurrence: BR)
  Receive Date: 20140328
  Receipt Date: 20140328
  Transmission Date: 20141002
  Serious: Yes (Other)
  Sender: FDA-Public Use
  Company Number: BR-JNJFOC-20140313509

PATIENT
  Age: 23 Year
  Sex: Female

DRUGS (3)
  1. REMICADE [Suspect]
     Indication: CROHN^S DISEASE
     Route: 042
     Dates: start: 201210, end: 201210
  2. REMICADE [Suspect]
     Indication: CROHN^S DISEASE
     Route: 042
     Dates: start: 2011
  3. MESALAZINE [Concomitant]
     Route: 065

REACTIONS (6)
  - Road traffic accident [Recovered/Resolved]
  - Lower limb fracture [Recovered/Resolved]
  - Infusion related reaction [Recovered/Resolved]
  - Pruritus [Recovered/Resolved]
  - Ocular hyperaemia [Recovered/Resolved]
  - Pain [Recovered/Resolved]
